FAERS Safety Report 12804720 (Version 1)
Quarter: 2016Q4

REPORT INFORMATION
  Report Type: Spontaneous
  Country: CN (occurrence: CN)
  Receive Date: 20161003
  Receipt Date: 20161003
  Transmission Date: 20170207
  Serious: Yes (Other)
  Sender: FDA-Public Use
  Company Number: CN-GILEAD-2016-0236415

PATIENT
  Age: 51 Year
  Sex: Male

DRUGS (2)
  1. HEPSERA [Suspect]
     Active Substance: ADEFOVIR DIPIVOXIL
     Indication: HEPATITIS B
     Dosage: 10 MG, QD
     Route: 048
  2. LAMIVUDINE. [Concomitant]
     Active Substance: LAMIVUDINE
     Indication: HEPATITIS B
     Dosage: 100 MG, QD

REACTIONS (16)
  - Renal tubular dysfunction [Recovered/Resolved]
  - Back pain [Recovered/Resolved]
  - Osteoporosis [Recovered/Resolved]
  - Arthralgia [Recovered/Resolved]
  - Seizure [Recovered/Resolved]
  - Protein urine present [Unknown]
  - Alpha 1 microglobulin increased [Unknown]
  - Pain [Recovered/Resolved]
  - Beta 2 microglobulin urine increased [Unknown]
  - Hypophosphataemia [Recovered/Resolved]
  - Nodule [Unknown]
  - Blood parathyroid hormone decreased [Unknown]
  - Asthenia [Recovered/Resolved]
  - Osteomalacia [Recovered/Resolved]
  - Fanconi syndrome acquired [Recovered/Resolved]
  - Glucose urine present [Unknown]
